FAERS Safety Report 11117517 (Version 1)
Quarter: 2015Q2

REPORT INFORMATION
  Report Type: Spontaneous
  Country: FR (occurrence: FR)
  Receive Date: 20150516
  Receipt Date: 20150516
  Transmission Date: 20150821
  Serious: Yes (Other)
  Sender: FDA-Public Use
  Company Number: FR-MERCK-1505FRA003094

PATIENT
  Sex: Female

DRUGS (1)
  1. DAPTOMYCIN. [Suspect]
     Active Substance: DAPTOMYCIN
     Indication: POST PROCEDURAL INFECTION
     Dosage: 1 G DAILY
     Route: 065

REACTIONS (3)
  - Anxiety [Unknown]
  - Atrial fibrillation [Unknown]
  - Troponin increased [Unknown]
